FAERS Safety Report 6085661-6 (Version None)
Quarter: 2009Q1

REPORT INFORMATION
  Report Type: 
  Country: None (occurrence: None)
  Receive Date: 20090220
  Receipt Date: 20090212
  Transmission Date: 20090719
  Serious: Yes (Other)
  Sender: FDA-Public Use
  Company Number: GR-ROCHE-614640

PATIENT
  Age: 53 Year
  Sex: Male

DRUGS (3)
  1. MIRCERA [Suspect]
     Route: 065
     Dates: start: 20090116
  2. ADALAT CC [Concomitant]
     Route: 048
  3. BETA BLOCKER NOS [Concomitant]
     Dosage: NAME REPORTED AS B-BLOCKER NOS

REACTIONS (1)
  - PRIAPISM [None]
